APPROVED DRUG PRODUCT: SULFAMETHOXAZOLE AND TRIMETHOPRIM
Active Ingredient: SULFAMETHOXAZOLE; TRIMETHOPRIM
Strength: 200MG/5ML;40MG/5ML
Dosage Form/Route: SUSPENSION;ORAL
Application: A070028 | Product #001
Applicant: ANI PHARMACEUTICALS INC
Approved: Jun 2, 1987 | RLD: No | RS: No | Type: DISCN